FAERS Safety Report 12105030 (Version 1)
Quarter: 2016Q1

REPORT INFORMATION
  Report Type: Report from Study
  Country: US (occurrence: US)
  Receive Date: 20160223
  Receipt Date: 20160223
  Transmission Date: 20160526
  Serious: Yes (Other)
  Sender: FDA-Public Use
  Company Number: US-JNJFOC-20160214422

PATIENT

DRUGS (1)
  1. XARELTO [Suspect]
     Active Substance: RIVAROXABAN
     Indication: PULMONARY EMBOLISM
     Route: 048

REACTIONS (6)
  - Thrombosis [Unknown]
  - Hypercoagulation [Unknown]
  - Antinuclear antibody positive [Unknown]
  - Fibromyalgia [Unknown]
  - Peripheral venous disease [Unknown]
  - Nephrolithiasis [Unknown]
